FAERS Safety Report 8621960-9 (Version None)
Quarter: 2012Q3

REPORT INFORMATION
  Report Type: 
  Country: None (occurrence: None)
  Receive Date: 20120823
  Receipt Date: 20120823
  Transmission Date: 20120928
  Serious: Yes (Other)
  Sender: FDA-Public Use
  Company Number: None

PATIENT
  Sex: Female
  Weight: 63.9572 kg

DRUGS (1)
  1. DEPAKOTE [Suspect]
     Indication: EPILEPSY
     Dosage: 500 2 BID ORAL
     Route: 048
     Dates: start: 20081103, end: 20090507

REACTIONS (3)
  - VOMITING [None]
  - CONVULSION [None]
  - PRODUCT SUBSTITUTION ISSUE [None]
